FAERS Safety Report 5776914-7 (Version None)
Quarter: 2008Q2

REPORT INFORMATION
  Report Type: 
  Country: None (occurrence: None)
  Receive Date: 20080618
  Receipt Date: 20080612
  Transmission Date: 20081010
  Serious: Yes (Other)
  Sender: FDA-Public Use
  Company Number: B0493808A

PATIENT
  Sex: Male

DRUGS (5)
  1. PAROXETINE HCL [Suspect]
     Indication: DRUG USE FOR UNKNOWN INDICATION
     Dates: start: 19940926, end: 20020101
  2. ACETAMINOPHEN W/ CODEINE [Concomitant]
     Indication: HEADACHE
  3. DICLOFENAC [Concomitant]
     Indication: BACK PAIN
     Dosage: 25MG THREE TIMES PER DAY
  4. PROPRANOLOL [Concomitant]
     Indication: MIGRAINE
     Dates: start: 20040401
  5. INDERAL [Concomitant]
     Indication: MIGRAINE
     Dosage: 80MG PER DAY
     Dates: start: 20050401

REACTIONS (22)
  - AMNESIA [None]
  - ANGER [None]
  - ARTHRALGIA [None]
  - BALANCE DISORDER [None]
  - COLD SWEAT [None]
  - CONFUSIONAL STATE [None]
  - DIZZINESS [None]
  - DRUG WITHDRAWAL SYNDROME [None]
  - FALL [None]
  - FATIGUE [None]
  - FEELING HOT [None]
  - HEADACHE [None]
  - HYPERHIDROSIS [None]
  - LOSS OF CONSCIOUSNESS [None]
  - METAMORPHOPSIA [None]
  - MOUTH ULCERATION [None]
  - MUSCULOSKELETAL STIFFNESS [None]
  - MYALGIA [None]
  - NAUSEA [None]
  - SENSORY DISTURBANCE [None]
  - VISION BLURRED [None]
  - WEIGHT DECREASED [None]
